FAERS Safety Report 6699720-8 (Version None)
Quarter: 2010Q2

REPORT INFORMATION
  Report Type: 
  Country: None (occurrence: None)
  Receive Date: 20100428
  Receipt Date: 20100422
  Transmission Date: 20101027
  Serious: No
  Sender: FDA-Public Use
  Company Number: US-BIOGENIDEC-2010BI013564

PATIENT
  Age: 58 Year
  Sex: Male

DRUGS (3)
  1. AVONEX [Suspect]
     Indication: MULTIPLE SCLEROSIS
     Dates: start: 20100413
  2. AVONEX [Suspect]
     Dates: start: 20100420
  3. ADVIL [Concomitant]

REACTIONS (5)
  - ARTHRALGIA [None]
  - FEELING JITTERY [None]
  - HYPOPHAGIA [None]
  - INFLUENZA LIKE ILLNESS [None]
  - VOMITING [None]
